FAERS Safety Report 9323617 (Version 1)
Quarter: 2013Q2

REPORT INFORMATION
  Report Type: Spontaneous
  Country: US (occurrence: US)
  Receive Date: 20130603
  Receipt Date: 20130603
  Transmission Date: 20140414
  Serious: No
  Sender: FDA-Public Use
  Company Number: US-BAYER-2013-067442

PATIENT
  Age: 72 Year
  Sex: Female
  Weight: 53.06 kg

DRUGS (2)
  1. ALEVE CAPLET [Suspect]
     Indication: ARTHRITIS
     Dosage: 2 DF, PRN
     Route: 048
     Dates: start: 201212
  2. VITAMINS [Concomitant]

REACTIONS (1)
  - Somnolence [Not Recovered/Not Resolved]
